FAERS Safety Report 6386093-3 (Version None)
Quarter: 2009Q4

REPORT INFORMATION
  Report Type: 
  Country: None (occurrence: None)
  Receive Date: 20091002
  Receipt Date: 20081215
  Transmission Date: 20100525
  Serious: No
  Sender: FDA-Public Use
  Company Number: US-ASTRAZENECA-2008UW27991

PATIENT
  Age: 50 Year
  Sex: Female
  Weight: 89.4 kg

DRUGS (4)
  1. ARIMIDEX [Suspect]
     Indication: BREAST CANCER
     Route: 048
     Dates: start: 20081201
  2. LORTAB [Concomitant]
  3. KADIAN [Concomitant]
  4. LUNESTA [Concomitant]

REACTIONS (6)
  - ASTHMA [None]
  - FIBROMYALGIA [None]
  - HEADACHE [None]
  - HOT FLUSH [None]
  - IRRITABILITY [None]
  - NAUSEA [None]
